FAERS Safety Report 9089598 (Version 1)
Quarter: 2013Q1

REPORT INFORMATION
  Report Type: Spontaneous
  Country: FR (occurrence: FR)
  Receive Date: 20130131
  Receipt Date: 20130131
  Transmission Date: 20140127
  Serious: Yes (Hospitalization, Other)
  Sender: FDA-Public Use
  Company Number: FR-PFIZER INC-2013030420

PATIENT
  Age: 41 Year
  Sex: Female

DRUGS (8)
  1. CISPLATIN [Suspect]
     Indication: OVARIAN CANCER
     Dosage: 100 MG/M2, UNK
     Route: 042
     Dates: start: 19841019
  2. CISPLATIN [Suspect]
     Dosage: 100 MG/M2, UNK
     Route: 042
     Dates: start: 19841019
  3. CISPLATIN [Suspect]
     Dosage: 50 MG/M2, UNK
  4. DEXTROSE [Concomitant]
     Indication: OVARIAN CANCER
     Dosage: 1000 ML 5%, UNK
     Dates: start: 19841019
  5. DOXORUBICIN [Concomitant]
     Indication: OVARIAN CANCER
     Dosage: 25 MG/M2, UNK
  6. TENIPOSIDE [Concomitant]
     Indication: OVARIAN CANCER
     Dosage: 35 MG/M2, UNK
  7. CYCLOPHOSPHAMIDE [Concomitant]
     Indication: OVARIAN CANCER
     Dosage: 200 MG/M2, UNK
  8. FLUOROURACIL [Concomitant]
     Indication: OVARIAN CANCER
     Dosage: 350 MG/M2, UNK

REACTIONS (11)
  - Accidental overdose [Unknown]
  - Nausea [Recovering/Resolving]
  - Vomiting [Recovering/Resolving]
  - Diarrhoea [Recovering/Resolving]
  - Thirst [Recovering/Resolving]
  - Dysgeusia [Recovering/Resolving]
  - Headache [Recovering/Resolving]
  - Renal failure acute [Recovered/Resolved]
  - Metabolic acidosis [Recovering/Resolving]
  - Febrile bone marrow aplasia [Recovering/Resolving]
  - Bone marrow failure [Unknown]
